FAERS Safety Report 18714304 (Version 1)
Quarter: 2021Q1

REPORT INFORMATION
  Report Type: Spontaneous
  Country: US (occurrence: US)
  Receive Date: 20210107
  Receipt Date: 20210107
  Transmission Date: 20210419
  Serious: Yes (Hospitalization, Other)
  Sender: FDA-Public Use
  Company Number: US-PFIZER INC-2021006206

PATIENT
  Age: 61 Year
  Sex: Female

DRUGS (1)
  1. METHYLPREDNISOLONE. [Suspect]
     Active Substance: METHYLPREDNISOLONE
     Indication: GLOMERULONEPHRITIS RAPIDLY PROGRESSIVE
     Dosage: UNK (TAPERED)

REACTIONS (4)
  - Liver function test abnormal [Unknown]
  - Diverticulitis [Unknown]
  - Mental disorder [Unknown]
  - Diabetes mellitus [Unknown]
